FAERS Safety Report 18504371 (Version 3)
Quarter: 2020Q4

REPORT INFORMATION
  Report Type: Report from Study
  Country: US (occurrence: US)
  Receive Date: 20201114
  Receipt Date: 20201209
  Transmission Date: 20210114
  Serious: No
  Sender: FDA-Public Use
  Company Number: US-B.I. PHARMACEUTICALS,INC./RIDGEFIELD-2020-MR-026965

PATIENT
  Age: 63 Year
  Sex: Female

DRUGS (3)
  1. STIOLTO RESPIMAT [Suspect]
     Active Substance: OLODATEROL HYDROCHLORIDE\TIOTROPIUM BROMIDE MONOHYDRATE
     Indication: CHRONIC OBSTRUCTIVE PULMONARY DISEASE
     Dates: start: 2016
  2. ATROVENT [Suspect]
     Active Substance: IPRATROPIUM BROMIDE
     Indication: CHRONIC OBSTRUCTIVE PULMONARY DISEASE
     Dates: start: 2016
  3. VENTOLIN [Concomitant]
     Active Substance: ALBUTEROL SULFATE
     Indication: PRODUCT USED FOR UNKNOWN INDICATION

REACTIONS (16)
  - Bradykinesia [Not Recovered/Not Resolved]
  - Diverticulum [Unknown]
  - Intervertebral disc protrusion [Unknown]
  - Nasopharyngitis [Not Recovered/Not Resolved]
  - Anxiety disorder [Unknown]
  - Intervertebral disc degeneration [Unknown]
  - Sciatica [Unknown]
  - Ventricular extrasystoles [Unknown]
  - Gastrooesophageal reflux disease [Unknown]
  - Depression [Not Recovered/Not Resolved]
  - Diverticulitis [Unknown]
  - Peripheral vascular disorder [Unknown]
  - Anxiety [Unknown]
  - Illness [Unknown]
  - Dysstasia [Unknown]
  - Aortic stenosis [Unknown]

NARRATIVE: CASE EVENT DATE: 202010
